FAERS Safety Report 5234467-6 (Version None)
Quarter: 2007Q1

REPORT INFORMATION
  Report Type: 
  Country: None (occurrence: None)
  Receive Date: 20070209
  Receipt Date: 20070205
  Transmission Date: 20070707
  Serious: Yes (Other)
  Sender: FDA-Public Use
  Company Number: BE-GLAXOSMITHKLINE-B0457601A

PATIENT
  Age: 27 Year
  Sex: Female

DRUGS (2)
  1. AUGMENTIN '125' [Suspect]
     Indication: INFECTION
     Dosage: 4G PER DAY
     Route: 048
     Dates: start: 20070101
  2. PARACETAMOL [Concomitant]

REACTIONS (3)
  - BRONCHITIS [None]
  - HEPATITIS TOXIC [None]
  - NAUSEA [None]
